FAERS Safety Report 8760808 (Version 3)
Quarter: 2013Q1

REPORT INFORMATION
  Report Type: Spontaneous
  Country: US (occurrence: US)
  Receive Date: 20120830
  Receipt Date: 20130312
  Transmission Date: 20140127
  Serious: Yes (Hospitalization, Disabling, Other)
  Sender: FDA-Public Use
  Company Number: US-009507513-1112USA02423

PATIENT
  Sex: Female
  Weight: 50.79 kg

DRUGS (14)
  1. FOSAMAX [Suspect]
     Indication: OSTEOPENIA
     Dosage: 10 MG, QD
     Route: 048
     Dates: start: 19981202
  2. FOSAMAX [Suspect]
     Indication: OSTEOPOROSIS
     Dosage: 70 MG, QW
     Route: 048
     Dates: start: 20051013
  3. FOSAMAX [Suspect]
     Dosage: UNK
  4. FOSAMAX PLUS D [Suspect]
     Indication: OSTEOPENIA
     Dosage: 70 MG/2800 IU, QW
     Route: 048
     Dates: start: 20101203, end: 20101227
  5. FOSAMAX PLUS D [Suspect]
     Indication: OSTEOPOROSIS
  6. ALENDRONATE SODIUM [Suspect]
     Indication: OSTEOPENIA
     Dosage: 70 MG,QW
     Route: 048
     Dates: start: 20100201, end: 20100329
  7. ALENDRONATE SODIUM [Suspect]
     Indication: OSTEOPOROSIS
  8. ALENDRONATE SODIUM [Suspect]
     Indication: OSTEOPENIA
     Dosage: 70 MG, QW
     Route: 048
     Dates: start: 20110221, end: 20110523
  9. ALENDRONATE SODIUM [Suspect]
     Indication: OSTEOPOROSIS
  10. ALENDRONATE SODIUM [Suspect]
     Indication: OSTEOPENIA
     Dosage: 70 MG, QW
     Route: 048
     Dates: start: 20080309, end: 20091231
  11. ALENDRONATE SODIUM [Suspect]
     Indication: OSTEOPOROSIS
  12. COUMADIN [Concomitant]
     Dosage: 2.5 - 5 MG, QD
     Route: 048
  13. METOPROLOL [Concomitant]
     Dosage: 12.5 MG, BID
     Route: 048
  14. DIGOXIN [Concomitant]
     Dosage: 0.125 MG, QD
     Route: 048

REACTIONS (47)
  - Intramedullary rod insertion [Unknown]
  - Spinal fracture [Unknown]
  - Chest pain [Unknown]
  - Onychomycosis [Unknown]
  - Myocardial infarction [Unknown]
  - Fall [Unknown]
  - Cholecystitis [Unknown]
  - Diverticulitis [Unknown]
  - Hydronephrosis [Unknown]
  - Nephrolithiasis [Recovered/Resolved]
  - Calculus ureteric [Recovered/Resolved]
  - Bladder dilatation [Unknown]
  - Intestinal obstruction [Recovered/Resolved]
  - Haematochezia [Unknown]
  - Pancreatitis [Unknown]
  - Ovarian cyst [Unknown]
  - Compression fracture [Unknown]
  - Femur fracture [Unknown]
  - Constipation [Recovered/Resolved]
  - Bone graft [Unknown]
  - Rib fracture [Recovering/Resolving]
  - Hypertension [Unknown]
  - Anxiety [Unknown]
  - Coagulopathy [Unknown]
  - Urinary tract infection [Unknown]
  - Gastrooesophageal reflux disease [Unknown]
  - Spinal compression fracture [Unknown]
  - Pelvic fracture [Unknown]
  - Haemorrhoid operation [Unknown]
  - Appendicectomy [Unknown]
  - Transient ischaemic attack [Unknown]
  - Knee arthroplasty [Unknown]
  - Osteoarthritis [Unknown]
  - Post procedural haemorrhage [Unknown]
  - Post procedural haematoma [Unknown]
  - Erythema of eyelid [Unknown]
  - Seborrhoeic keratosis [Unknown]
  - Constipation [Unknown]
  - Dyspnoea [Unknown]
  - Atrial fibrillation [Unknown]
  - Bradycardia [Unknown]
  - Atrial flutter [Unknown]
  - Diverticulum [Unknown]
  - Anaemia [Unknown]
  - Occult blood positive [Unknown]
  - Rhinitis [Unknown]
  - Dementia [Unknown]
